FAERS Safety Report 10771161 (Version 2)
Quarter: 2016Q2

REPORT INFORMATION
  Report Type: Spontaneous
  Country: TR (occurrence: TR)
  Receive Date: 20150206
  Receipt Date: 20160530
  Transmission Date: 20160815
  Serious: Yes (Other)
  Sender: FDA-Public Use
  Company Number: TR-JNJFOC-20140922667

PATIENT

DRUGS (4)
  1. AZATHIOPRINE. [Concomitant]
     Active Substance: AZATHIOPRINE
     Route: 065
  2. METHOTREXATE [Concomitant]
     Active Substance: METHOTREXATE
     Route: 065
  3. 6-MERCAPTOPURINE [Concomitant]
     Active Substance: MERCAPTOPURINE
     Route: 065
  4. INFLIXIMAB, RECOMBINANT [Suspect]
     Active Substance: INFLIXIMAB
     Indication: INFLAMMATORY BOWEL DISEASE
     Dosage: AT 0,2,6 AND 8 WEEKS
     Route: 042

REACTIONS (9)
  - Anaphylactic reaction [Unknown]
  - Hypertension [Unknown]
  - Chest discomfort [Unknown]
  - Kounis syndrome [Unknown]
  - Drug effect incomplete [Unknown]
  - Infusion related reaction [Unknown]
  - Hypotension [Unknown]
  - Respiratory distress [Unknown]
  - Rash [Unknown]
